FAERS Safety Report 25574829 (Version 1)
Quarter: 2025Q3

REPORT INFORMATION
  Report Type: Spontaneous
  Country: US (occurrence: US)
  Receive Date: 20250718
  Receipt Date: 20250718
  Transmission Date: 20251021
  Serious: Yes (Hospitalization, Other)
  Sender: ACCORD
  Company Number: US-Accord-494308

PATIENT
  Age: 54 Year
  Sex: Male

DRUGS (2)
  1. MITOMYCIN [Suspect]
     Active Substance: MITOMYCIN
     Indication: Bladder transitional cell carcinoma
     Route: 042
     Dates: start: 201608
  2. FLUOROURACIL [Concomitant]
     Active Substance: FLUOROURACIL
     Indication: Bladder transitional cell carcinoma
     Dosage: DAYS 1 AND 22
     Dates: start: 201608

REACTIONS (3)
  - Pneumonitis [Recovered/Resolved]
  - Acute respiratory distress syndrome [Recovered/Resolved]
  - Off label use [Unknown]

NARRATIVE: CASE EVENT DATE: 20161101
